FAERS Safety Report 6242064-9 (Version None)
Quarter: 2009Q2

REPORT INFORMATION
  Report Type: 
  Country: None (occurrence: None)
  Receive Date: 20090622
  Receipt Date: 20090611
  Transmission Date: 20091009
  Serious: Yes (Congenital Anomaly)
  Sender: FDA-Public Use
  Company Number: GXKR2009GB06820

PATIENT

DRUGS (2)
  1. VENLAFAXINE HCL [Suspect]
     Dosage: MATERNA DOSE: 300 MG, QD, TRANSPLACENTAL
     Route: 064
  2. PREDNISOLONE [Concomitant]

REACTIONS (2)
  - CONGENITAL PULMONARY VALVE DISORDER [None]
  - MATERNAL DRUGS AFFECTING FOETUS [None]
